FAERS Safety Report 16730766 (Version 1)
Quarter: 2019Q3

REPORT INFORMATION
  Report Type: Spontaneous
  Country: US (occurrence: US)
  Receive Date: 20190822
  Receipt Date: 20190822
  Transmission Date: 20191005
  Serious: No
  Sender: FDA-Public Use
  Company Number: US-SUNOVION-2019SUN003338

PATIENT

DRUGS (2)
  1. LATUDA [Suspect]
     Active Substance: LURASIDONE HYDROCHLORIDE
     Dosage: UNKNOWN
     Route: 048
  2. LATUDA [Suspect]
     Active Substance: LURASIDONE HYDROCHLORIDE
     Dosage: TOO HIGH
     Route: 048

REACTIONS (2)
  - Mental disorder [Unknown]
  - Weight increased [Unknown]
